FAERS Safety Report 4809922-0 (Version None)
Quarter: 2005Q4

REPORT INFORMATION
  Report Type: 
  Country: None (occurrence: None)
  Receive Date: 20051024
  Receipt Date: 20051013
  Transmission Date: 20060501
  Serious: Yes (Other)
  Sender: FDA-Public Use
  Company Number: 2005142463

PATIENT
  Age: 56 Year
  Sex: Female

DRUGS (7)
  1. NEURONTIN [Suspect]
     Indication: NEURALGIA
     Dosage: 200 MG (100 MG, 2 IN 1 D), ORAL
     Route: 048
     Dates: start: 20050817, end: 20050101
  2. EFFEXOR [Concomitant]
  3. ULTRAM [Concomitant]
  4. LASIX [Concomitant]
  5. LISINOPRIL [Concomitant]
  6. SYNTHROID [Concomitant]
  7. POTASSIUM CHLORIDE [Concomitant]

REACTIONS (2)
  - DRUG HYPERSENSITIVITY [None]
  - THROAT TIGHTNESS [None]
